FAERS Safety Report 4263780-4 (Version None)
Quarter: 2004Q1

REPORT INFORMATION
  Report Type: 
  Country: None (occurrence: None)
  Receive Date: 20040102
  Receipt Date: 20031222
  Transmission Date: 20041129
  Serious: Yes (Other)
  Sender: FDA-Public Use
  Company Number: USA031255239

PATIENT
  Sex: Female

DRUGS (4)
  1. PROZAC [Suspect]
     Indication: DEPRESSION
     Dosage: 60 MG/DAY
     Dates: start: 19990101
  2. XANAX [Concomitant]
  3. MULTIVITAMIN [Concomitant]
  4. PAPAYA [Concomitant]

REACTIONS (4)
  - CONDITION AGGRAVATED [None]
  - DEPRESSION [None]
  - GASTRIC BYPASS [None]
  - SUICIDAL IDEATION [None]
